FAERS Safety Report 18626450 (Version 3)
Quarter: 2021Q2

REPORT INFORMATION
  Report Type: Spontaneous
  Country: US (occurrence: US)
  Receive Date: 20201216
  Receipt Date: 20210407
  Transmission Date: 20210717
  Serious: Yes (Hospitalization)
  Sender: FDA-Public Use
  Company Number: US-SA-2020SA359522

PATIENT
  Age: 61 Year
  Sex: Male

DRUGS (1)
  1. KEVZARA [Suspect]
     Active Substance: SARILUMAB
     Indication: PRODUCT USED FOR UNKNOWN INDICATION
     Dosage: 200 MG, QOW
     Route: 058
     Dates: start: 202010, end: 2020

REACTIONS (3)
  - Hospitalisation [Unknown]
  - Candida infection [Unknown]
  - Illness [Unknown]

NARRATIVE: CASE EVENT DATE: 2020
